FAERS Safety Report 13562219 (Version 1)
Quarter: 2017Q2

REPORT INFORMATION
  Report Type: Spontaneous
  Country: TH (occurrence: TH)
  Receive Date: 20170519
  Receipt Date: 20170519
  Transmission Date: 20170830
  Serious: Yes (Hospitalization)
  Sender: FDA-Public Use
  Company Number: TH-ROCHE-1936373

PATIENT
  Age: 83 Year
  Sex: Female

DRUGS (2)
  1. DOXYCYCLINE. [Concomitant]
     Active Substance: DOXYCYCLINE
     Indication: SYSTEMIC INFECTION
     Route: 048
  2. CEFTRIAXONE. [Suspect]
     Active Substance: CEFTRIAXONE
     Indication: SYSTEMIC INFECTION
     Route: 042

REACTIONS (1)
  - Choreoathetosis [Recovered/Resolved]
